FAERS Safety Report 13377432 (Version 3)
Quarter: 2017Q2

REPORT INFORMATION
  Report Type: Spontaneous
  Country: SE (occurrence: SE)
  Receive Date: 20170328
  Receipt Date: 20170502
  Transmission Date: 20170830
  Serious: Yes (Other)
  Sender: FDA-Public Use
  Company Number: SE-GLAXOSMITHKLINE-SE2017041431

PATIENT
  Age: 63 Year
  Sex: Female

DRUGS (5)
  1. TROPICAMIDE. [Concomitant]
     Active Substance: TROPICAMIDE
     Indication: CATARACT OPERATION
     Dosage: UNK
     Route: 065
  2. TETRACAINE. [Concomitant]
     Active Substance: TETRACAINE
     Indication: CATARACT OPERATION
     Dosage: UNK
     Route: 065
  3. ZINACEF [Suspect]
     Active Substance: CEFUROXIME SODIUM
     Indication: CATARACT OPERATION
     Dosage: UNK
     Route: 065
     Dates: start: 20170228, end: 20170228
  4. CYCLOPENTOLATE HYDROCHLORIDE + LIDOCAINE HYDROCHLORIDE + PHENYLEPHRINE [Concomitant]
     Indication: CATARACT OPERATION
     Dosage: UNK
     Route: 065
  5. PHENYLEPHRINE [Concomitant]
     Active Substance: PHENYLEPHRINE\PHENYLEPHRINE HYDROCHLORIDE
     Indication: CATARACT OPERATION
     Dosage: UNK
     Route: 065

REACTIONS (3)
  - Azotaemia [Recovered/Resolved]
  - Dysuria [Recovered/Resolved]
  - Haematuria [Recovered/Resolved]

NARRATIVE: CASE EVENT DATE: 20170228
